FAERS Safety Report 23920017 (Version 2)
Quarter: 2024Q3

REPORT INFORMATION
  Report Type: Spontaneous
  Country: US (occurrence: US)
  Receive Date: 20240530
  Receipt Date: 20240722
  Transmission Date: 20241017
  Serious: No
  Sender: LEO PHARM
  Company Number: US-LEO Pharma-370753

PATIENT
  Age: 65 Year
  Sex: Male

DRUGS (2)
  1. ADBRY [Suspect]
     Active Substance: TRALOKINUMAB-LDRM
     Indication: Dermatitis atopic
     Route: 058
     Dates: start: 20240123
  2. ADBRY [Suspect]
     Active Substance: TRALOKINUMAB-LDRM
     Indication: Dermatitis atopic
     Route: 058

REACTIONS (2)
  - Rash [Recovered/Resolved]
  - Dermatitis atopic [Recovered/Resolved]
